FAERS Safety Report 5912019-X (Version None)
Quarter: 2008Q4

REPORT INFORMATION
  Report Type: 
  Country: None (occurrence: None)
  Receive Date: 20081006
  Receipt Date: 20080922
  Transmission Date: 20090506
  Serious: Yes (Hospitalization)
  Sender: FDA-Public Use
  Company Number: 100#08#2008-04897

PATIENT
  Age: 55 Year
  Sex: Female

DRUGS (6)
  1. VENLAFAXINE HCL [Suspect]
     Indication: DEPRESSION
     Dosage: 75 MG
  2. PROPRANOLOL [Suspect]
     Indication: OESOPHAGEAL VARICES HAEMORRHAGE
     Dosage: 160 MG
  3. PANTOPRAZOLE SODIUM [Concomitant]
  4. ALENDRONIC ACID (ALENDRONIC ACID) [Concomitant]
  5. CALCIUM (CALCIUM) [Concomitant]
  6. COLECALCIPEROL (COLECALCIFEROL) [Concomitant]

REACTIONS (7)
  - ACUTE RESPIRATORY FAILURE [None]
  - DRUG INTERACTION [None]
  - OEDEMA PERIPHERAL [None]
  - OESOPHAGEAL VARICES HAEMORRHAGE [None]
  - PNEUMONIA MYCOPLASMAL [None]
  - PNEUMONITIS [None]
  - UPPER GASTROINTESTINAL HAEMORRHAGE [None]
